FAERS Safety Report 9927455 (Version 1)
Quarter: 2014Q1

REPORT INFORMATION
  Report Type: Report from Study
  Country: US (occurrence: US)
  Receive Date: 20140227
  Receipt Date: 20140227
  Transmission Date: 20141002
  Serious: Yes (Other)
  Sender: FDA-Public Use
  Company Number: US-ROCHE-1343599

PATIENT
  Age: 62 Year
  Sex: Male

DRUGS (9)
  1. LUCENTIS [Suspect]
     Indication: RETINAL VEIN OCCLUSION
     Dosage: OD (RIGHT EYE)
     Route: 050
  2. LUCENTIS [Suspect]
     Indication: AGE-RELATED MACULAR DEGENERATION
  3. LUCENTIS [Suspect]
     Indication: MACULAR DEGENERATION
  4. AVASTIN [Suspect]
     Indication: PRODUCT USED FOR UNKNOWN INDICATION
     Dosage: X 3 DOSAGES
     Route: 065
     Dates: end: 201104
  5. FLOMAX (UNITED STATES) [Concomitant]
     Dosage: QD (ONCE DAILY)
     Route: 065
  6. LIPITOR [Concomitant]
     Dosage: QD (ONCE DAILY)
     Route: 065
  7. PRESERVISION AREDS [Concomitant]
  8. ASPIRIN [Concomitant]
     Route: 065
  9. ALREX [Concomitant]
     Dosage: BID (TWICE A DAY) IN RIGHT EYE (OD)
     Route: 047

REACTIONS (10)
  - Eye irritation [Unknown]
  - Eye pruritus [Unknown]
  - Vision blurred [Unknown]
  - Ocular discomfort [Unknown]
  - Photosensitivity reaction [Unknown]
  - Coronary arterial stent insertion [Unknown]
  - Vitreous detachment [Unknown]
  - Macular fibrosis [Unknown]
  - Retinal haemorrhage [Unknown]
  - Ocular hypertension [Unknown]
